FAERS Safety Report 8348367-6 (Version None)
Quarter: 2012Q2

REPORT INFORMATION
  Report Type: 
  Country: None (occurrence: None)
  Receive Date: 20120509
  Receipt Date: 20120503
  Transmission Date: 20120825
  Serious: Yes (Death)
  Sender: FDA-Public Use
  Company Number: US-PFIZER INC-2012109114

PATIENT
  Sex: Male
  Weight: 69.841 kg

DRUGS (1)
  1. REVATIO [Suspect]
     Indication: LUNG DISORDER
     Dosage: UNK
     Dates: start: 20120101

REACTIONS (2)
  - CHRONIC OBSTRUCTIVE PULMONARY DISEASE [None]
  - MYOCARDIAL INFARCTION [None]
